FAERS Safety Report 10925207 (Version 1)
Quarter: 2015Q1

REPORT INFORMATION
  Report Type: Spontaneous
  Country: US (occurrence: None)
  Receive Date: 20150316
  Receipt Date: 20150316
  Transmission Date: 20150721
  Serious: No
  Sender: FDA-Public Use
  Company Number: None

PATIENT
  Age: 19 Year
  Sex: Female
  Weight: 52.16 kg

DRUGS (4)
  1. DEPO-PROVERA [Suspect]
     Active Substance: MEDROXYPROGESTERONE ACETATE
     Indication: CONTRACEPTION
     Dosage: 1 SHOT EVERY 13 WEEKS
     Route: 030
  2. ONE-A-DAY WOMEN^S MULTIVITAMIN [Concomitant]
  3. VITAMIN D3 [Concomitant]
     Active Substance: CHOLECALCIFEROL
  4. COLAZOL [Concomitant]

REACTIONS (4)
  - Quality of life decreased [None]
  - Menstruation irregular [None]
  - Libido decreased [None]
  - Dyspareunia [None]
